FAERS Safety Report 6679811-8 (Version None)
Quarter: 2010Q2

REPORT INFORMATION
  Report Type: 
  Country: None (occurrence: None)
  Receive Date: 20100413
  Receipt Date: 20091110
  Transmission Date: 20101027
  Serious: No
  Sender: FDA-Public Use
  Company Number: US-ASTRAZENECA-2009SE26119

PATIENT
  Sex: Female

DRUGS (5)
  1. ATENOLOL [Suspect]
     Indication: HYPERTENSION
     Route: 065
  2. CANDESARTAN [Suspect]
     Indication: HYPERTENSION
     Route: 048
  3. LISINOPRIL [Suspect]
     Indication: HYPERTENSION
     Route: 065
  4. METOPROLOL [Suspect]
     Indication: HYPERTENSION
     Route: 048
  5. CLONIDINE [Concomitant]

REACTIONS (8)
  - BACK PAIN [None]
  - CHEST PAIN [None]
  - COUGH [None]
  - DIARRHOEA [None]
  - DYSPEPSIA [None]
  - FACTITIOUS DISORDER [None]
  - HEADACHE [None]
  - NECK PAIN [None]
